FAERS Safety Report 5910608-X (Version None)
Quarter: 2008Q4

REPORT INFORMATION
  Report Type: 
  Country: None (occurrence: None)
  Receive Date: 20081007
  Receipt Date: 20081002
  Transmission Date: 20090506
  Serious: Yes (Other)
  Sender: FDA-Public Use
  Company Number: B0540346A

PATIENT
  Sex: Male

DRUGS (1)
  1. NICABATE CQ 4MG GUM [Suspect]
     Indication: SMOKING CESSATION THERAPY
     Route: 002
     Dates: start: 20061001

REACTIONS (5)
  - BLOOD PRESSURE ABNORMAL [None]
  - DEPENDENCE [None]
  - DRY MOUTH [None]
  - HYPERTENSION [None]
  - INCORRECT DRUG ADMINISTRATION DURATION [None]
